FAERS Safety Report 8845452 (Version 1)
Quarter: 2012Q4

REPORT INFORMATION
  Report Type: Spontaneous
  Country: US (occurrence: None)
  Receive Date: 20121015
  Receipt Date: 20121015
  Transmission Date: 20130627
  Serious: Yes (Life-Threatening, Hospitalization)
  Sender: FDA-Public Use
  Company Number: UTC-023678

PATIENT
  Age: 49 Year
  Sex: Male
  Weight: 79.55 kg

DRUGS (5)
  1. REMODULIN [Suspect]
     Indication: PRIMARY PULMONARY HYPERTENSION
     Dates: start: 20110811
  2. REMODULIN [Suspect]
     Indication: PRIMARY PULMONARY HYPERTENSION
  3. COUMADIN (WARFARIN SODIIUM) [Concomitant]
  4. REVATIO (SILDENAFIL CITRATE) [Concomitant]
  5. LETAIRIS (AMBRISENTAN [Concomitant]

REACTIONS (2)
  - Syncope [None]
  - Pulmonary hypertension [None]
